FAERS Safety Report 4451319-X (Version None)
Quarter: 2004Q3

REPORT INFORMATION
  Report Type: 
  Country: None (occurrence: None)
  Receive Date: 20040913
  Receipt Date: 20040708
  Transmission Date: 20050211
  Serious: No
  Sender: FDA-Public Use
  Company Number: 2004-BP-05517BP

PATIENT
  Sex: Female

DRUGS (7)
  1. SPIRIVA [Suspect]
     Indication: CHRONIC OBSTRUCTIVE AIRWAYS DISEASE
     Dosage: 18 MCG (18 MCG), IH
     Route: 055
     Dates: start: 20040708
  2. SPIRIVA [Suspect]
  3. HUMALOG [Concomitant]
  4. REGULAR INSULIN [Concomitant]
  5. PREVACID [Concomitant]
  6. COMBIVENT [Concomitant]
  7. ALBUTEROL [Concomitant]

REACTIONS (2)
  - FEELING ABNORMAL [None]
  - NASOPHARYNGITIS [None]
